FAERS Safety Report 4655566-3 (Version None)
Quarter: 2005Q2

REPORT INFORMATION
  Report Type: 
  Country: None (occurrence: None)
  Receive Date: 20050505
  Receipt Date: 20050421
  Transmission Date: 20051028
  Serious: Yes (Hospitalization)
  Sender: FDA-Public Use
  Company Number: 2005UW06373

PATIENT
  Age: 51 Year
  Sex: Male

DRUGS (7)
  1. CRESTOR [Suspect]
     Dosage: 10 MG PO
     Route: 048
  2. LOPRESSOR [Concomitant]
  3. VASOTEC [Concomitant]
  4. PLAVIX [Concomitant]
  5. NIASPAN [Concomitant]
  6. VIAGRA [Concomitant]
  7. ASPIRIN [Concomitant]

REACTIONS (1)
  - BLOOD CREATINE PHOSPHOKINASE INCREASED [None]
